FAERS Safety Report 4424496-4 (Version None)
Quarter: 2004Q3

REPORT INFORMATION
  Report Type: 
  Country: None (occurrence: None)
  Receive Date: 20040812
  Receipt Date: 20040803
  Transmission Date: 20050211
  Serious: Yes (Other)
  Sender: FDA-Public Use
  Company Number: GB-GLAXOSMITHKLINE-B0342241A

PATIENT
  Sex: Male

DRUGS (1)
  1. PAROXETINE HCL [Suspect]
     Dates: start: 19910101

REACTIONS (1)
  - SUICIDE ATTEMPT [None]
